FAERS Safety Report 7164111-2 (Version None)
Quarter: 2010Q4

REPORT INFORMATION
  Report Type: 
  Country: None (occurrence: None)
  Receive Date: 20101215
  Receipt Date: 20101203
  Transmission Date: 20110411
  Serious: Yes (Hospitalization)
  Sender: FDA-Public Use
  Company Number: US-GILEAD-2010-0034161

PATIENT
  Sex: Male
  Weight: 68.554 kg

DRUGS (9)
  1. AMBRISENTAN [Suspect]
     Indication: IDIOPATHIC PULMONARY FIBROSIS
     Route: 048
     Dates: start: 20101118
  2. AMBRISENTAN [Suspect]
     Indication: PULMONARY HYPERTENSION
  3. SPIRIVA [Concomitant]
  4. PREDNICOT [Concomitant]
  5. FUROSEMIDE [Concomitant]
  6. BUDESONIDE [Concomitant]
  7. ATORVASTATIN [Concomitant]
  8. ASPIRIN [Concomitant]
  9. ARFORMOTEROL TARTRATE [Concomitant]

REACTIONS (2)
  - DYSPNOEA [None]
  - HYPOXIA [None]
